FAERS Safety Report 7864461-8 (Version None)
Quarter: 2011Q4

REPORT INFORMATION
  Report Type: 
  Country: None (occurrence: None)
  Receive Date: 20111028
  Receipt Date: 20111020
  Transmission Date: 20120403
  Serious: Yes (Hospitalization)
  Sender: FDA-Public Use
  Company Number: CH-JNJFOC-20111008516

PATIENT
  Age: 67 Year
  Sex: Male

DRUGS (3)
  1. HALDOL [Suspect]
     Indication: AGITATION
     Route: 048
     Dates: start: 20110523, end: 20110523
  2. LANTUS [Concomitant]
     Route: 058
     Dates: start: 20100101
  3. VALIUM [Concomitant]
     Route: 048
     Dates: start: 20110523, end: 20110523

REACTIONS (3)
  - PARKINSONISM [None]
  - MYOCLONUS [None]
  - DEPRESSED LEVEL OF CONSCIOUSNESS [None]
